FAERS Safety Report 8209863-5 (Version None)
Quarter: 2012Q1

REPORT INFORMATION
  Report Type: 
  Country: None (occurrence: None)
  Receive Date: 20120314
  Receipt Date: 20120301
  Transmission Date: 20120608
  Serious: No
  Sender: FDA-Public Use
  Company Number: US-ASTRAZENECA-2012SE06370

PATIENT
  Age: 55 Year
  Sex: Female

DRUGS (2)
  1. TOPROL-XL [Concomitant]
  2. METOPROLOL SUCCINATE [Suspect]
     Dosage: GENERIC
     Route: 048

REACTIONS (2)
  - BLOOD PRESSURE INCREASED [None]
  - DRUG INEFFECTIVE [None]
